FAERS Safety Report 6427993-5 (Version None)
Quarter: 2009Q4

REPORT INFORMATION
  Report Type: 
  Country: None (occurrence: None)
  Receive Date: 20091105
  Receipt Date: 20091030
  Transmission Date: 20100525
  Serious: Yes (Life-Threatening, Hospitalization)
  Sender: FDA-Public Use
  Company Number: ES-ROCHE-654482

PATIENT
  Sex: Female
  Weight: 55.6 kg

DRUGS (7)
  1. CAPECITABINE [Suspect]
     Dosage: FREQUENCY-DAT 2- DAY 8: Q2W
     Route: 048
     Dates: start: 20090812
  2. BEVACIZUMAB [Suspect]
     Dosage: FORM-INFUSSION
     Route: 042
     Dates: start: 20090812
  3. IRINOTECAN HCL [Suspect]
     Dosage: FORM-INFUSSION
     Route: 042
     Dates: start: 20090812
  4. SIMVASTATIN [Concomitant]
     Dates: start: 20090501
  5. EMULIQUEN [Concomitant]
     Dates: start: 20090801, end: 20090822
  6. TOPAMAX [Concomitant]
  7. FENTANILO [Concomitant]
     Dosage: TDD:25/72 H.
     Dates: start: 20090915

REACTIONS (3)
  - COLITIS [None]
  - LARGE INTESTINE PERFORATION [None]
  - VOLVULUS [None]
